FAERS Safety Report 24757595 (Version 4)
Quarter: 2025Q3

REPORT INFORMATION
  Report Type: Spontaneous
  Country: EU (occurrence: EU)
  Receive Date: 20241220
  Receipt Date: 20250701
  Transmission Date: 20251020
  Serious: Yes (Hospitalization)
  Sender: AUROBINDO
  Company Number: EU-002147023-NVSC2024DE232392

PATIENT
  Sex: Female

DRUGS (16)
  1. DICLOFENAC [Suspect]
     Active Substance: DICLOFENAC
     Indication: Psoriatic arthropathy
     Dosage: 150 MILLIGRAM, ONCE A DAY
     Route: 065
     Dates: start: 20220701
  2. DICLOFENAC [Suspect]
     Active Substance: DICLOFENAC
     Route: 065
     Dates: start: 20190915, end: 20201024
  3. DICLOFENAC [Suspect]
     Active Substance: DICLOFENAC
     Route: 065
     Dates: start: 20220512
  4. DICLOFENAC [Suspect]
     Active Substance: DICLOFENAC
     Route: 065
     Dates: start: 20220701
  5. DICLOFENAC [Suspect]
     Active Substance: DICLOFENAC
     Route: 065
  6. SECUKINUMAB [Suspect]
     Active Substance: SECUKINUMAB
     Indication: Psoriatic arthropathy
     Route: 065
     Dates: start: 20230815, end: 20240710
  7. COSENTYX [Suspect]
     Active Substance: SECUKINUMAB
     Indication: Psoriatic arthropathy
     Route: 065
     Dates: start: 20230815
  8. ISOSORBIDE DINITRATE [Concomitant]
     Active Substance: ISOSORBIDE DINITRATE
     Indication: Product used for unknown indication
     Route: 065
  9. ACETAMINOPHEN [Concomitant]
     Active Substance: ACETAMINOPHEN
     Indication: Product used for unknown indication
     Route: 065
  10. ALBUTEROL [Concomitant]
     Active Substance: ALBUTEROL
     Indication: Product used for unknown indication
     Route: 065
  11. STELARA [Concomitant]
     Active Substance: USTEKINUMAB
     Indication: Product used for unknown indication
     Route: 065
     Dates: start: 20181120, end: 20221128
  12. METHOTREXATE [Concomitant]
     Active Substance: METHOTREXATE
     Indication: Product used for unknown indication
     Route: 058
     Dates: start: 20190527, end: 20190627
  13. Etoricoxib 120 litha [Concomitant]
     Indication: Product used for unknown indication
     Route: 065
     Dates: start: 20201025, end: 20210308
  14. TREMFYA [Concomitant]
     Active Substance: GUSELKUMAB
     Indication: Product used for unknown indication
     Route: 065
     Dates: start: 20230314, end: 20230601
  15. RINVOQ [Concomitant]
     Active Substance: UPADACITINIB
     Indication: Product used for unknown indication
     Route: 065
     Dates: start: 20240724
  16. COSENTYX [Concomitant]
     Active Substance: SECUKINUMAB
     Indication: Product used for unknown indication
     Route: 065

REACTIONS (8)
  - Influenza [Recovered/Resolved]
  - Dyspnoea [Recovered/Resolved]
  - Cough [Recovered/Resolved]
  - Nausea [Recovered/Resolved]
  - Vomiting [Recovered/Resolved]
  - Pyrexia [Recovered/Resolved]
  - Hypotonia [Recovered/Resolved]
  - Illness [Recovered/Resolved]

NARRATIVE: CASE EVENT DATE: 20240105
